FAERS Safety Report 13396025 (Version 1)
Quarter: 2017Q2

REPORT INFORMATION
  Report Type: Spontaneous
  Country: US (occurrence: US)
  Receive Date: 20170403
  Receipt Date: 20170403
  Transmission Date: 20170830
  Serious: Yes (Other)
  Sender: FDA-Public Use
  Company Number: None

PATIENT
  Age: 9 Year
  Sex: Male
  Weight: 49.5 kg

DRUGS (2)
  1. MONTELUKAST SOD 5 MG [Suspect]
     Active Substance: MONTELUKAST SODIUM
     Indication: ASTHMA
     Dosage: QUANTITY:30 TABLET(S); AT BEDTIME?
     Route: 048
     Dates: start: 20161118, end: 20170101
  2. VENTOLIN [Concomitant]
     Active Substance: ALBUTEROL SULFATE

REACTIONS (7)
  - Insomnia [None]
  - Anxiety [None]
  - Chest pain [None]
  - Dyspnoea [None]
  - Fear [None]
  - Somnambulism [None]
  - Paraesthesia [None]

NARRATIVE: CASE EVENT DATE: 20161118
